FAERS Safety Report 23614595 (Version 1)
Quarter: 2024Q1

REPORT INFORMATION
  Report Type: Spontaneous
  Country: KR (occurrence: KR)
  Receive Date: 20240311
  Receipt Date: 20240311
  Transmission Date: 20240409
  Serious: Yes (Other)
  Sender: FDA-Public Use
  Company Number: KR-JAZZ PHARMACEUTICALS-2024-KR-003883

PATIENT
  Age: 8 Year
  Sex: Male
  Weight: 28 kg

DRUGS (5)
  1. CANNABIDIOL [Suspect]
     Active Substance: CANNABIDIOL
     Indication: Lennox-Gastaut syndrome
     Dosage: 0.6CC BID
     Route: 048
     Dates: start: 20231215
  2. CANNABIDIOL [Suspect]
     Active Substance: CANNABIDIOL
     Dosage: 0.8 CC BID
  3. CANNABIDIOL [Suspect]
     Active Substance: CANNABIDIOL
     Dosage: 1CC BID
  4. CANNABIDIOL [Suspect]
     Active Substance: CANNABIDIOL
     Dosage: DECREASED 0.6CC BID
  5. CANNABIDIOL [Suspect]
     Active Substance: CANNABIDIOL
     Dosage: 0.3CC BID
     Dates: end: 20240228

REACTIONS (1)
  - Change in seizure presentation [Not Recovered/Not Resolved]

NARRATIVE: CASE EVENT DATE: 20231218
